FAERS Safety Report 6159842-7 (Version None)
Quarter: 2009Q2

REPORT INFORMATION
  Report Type: 
  Country: None (occurrence: None)
  Receive Date: 20090420
  Receipt Date: 20090409
  Transmission Date: 20091009
  Serious: Yes (Other)
  Sender: FDA-Public Use
  Company Number: US-B.I. PHARMACEUTICALS,INC./RIDGEFIELD-2009-DE-02985GD

PATIENT
  Sex: Male

DRUGS (8)
  1. VIRAMUNE [Suspect]
     Indication: HIV INFECTION
  2. VIRAMUNE [Suspect]
     Indication: ACQUIRED IMMUNODEFICIENCY SYNDROME
  3. VIDEX [Suspect]
     Indication: HIV INFECTION
  4. VIDEX [Suspect]
     Indication: ACQUIRED IMMUNODEFICIENCY SYNDROME
  5. VIREAD [Suspect]
     Indication: HIV INFECTION
  6. VIREAD [Suspect]
     Indication: ACQUIRED IMMUNODEFICIENCY SYNDROME
  7. ZIAGEN [Suspect]
     Indication: HIV INFECTION
  8. ZIAGEN [Suspect]
     Indication: ACQUIRED IMMUNODEFICIENCY SYNDROME

REACTIONS (3)
  - EYELID PTOSIS [None]
  - FACIAL WASTING [None]
  - MITOCHONDRIAL MYOPATHY [None]
